FAERS Safety Report 6824480-7 (Version None)
Quarter: 2010Q3

REPORT INFORMATION
  Report Type: 
  Country: None (occurrence: None)
  Receive Date: 20100708
  Receipt Date: 20061109
  Transmission Date: 20110219
  Serious: No
  Sender: FDA-Public Use
  Company Number: US-PFIZER INC-2006134186

PATIENT
  Sex: Female
  Weight: 68.04 kg

DRUGS (4)
  1. CHANTIX [Suspect]
     Indication: EX-TOBACCO USER
     Dates: start: 20060916, end: 20061026
  2. XANAX [Suspect]
     Indication: INSOMNIA
  3. ESTRADIOL [Concomitant]
  4. LEXAPRO [Concomitant]
     Indication: INSOMNIA

REACTIONS (9)
  - ABNORMAL DREAMS [None]
  - ADVERSE EVENT [None]
  - CHILLS [None]
  - HEADACHE [None]
  - INFLUENZA [None]
  - INSOMNIA [None]
  - LOGORRHOEA [None]
  - PAIN [None]
  - PYREXIA [None]
